FAERS Safety Report 21541094 (Version 3)
Quarter: 2023Q1

REPORT INFORMATION
  Report Type: Spontaneous
  Country: CN (occurrence: CN)
  Receive Date: 20221102
  Receipt Date: 20230328
  Transmission Date: 20230418
  Serious: Yes (Hospitalization, Disabling)
  Sender: FDA-Public Use
  Company Number: CN-NOVARTISPH-NVSC2022CN244892

PATIENT
  Age: 70 Year
  Sex: Female
  Weight: 58 kg

DRUGS (1)
  1. ACLASTA [Suspect]
     Active Substance: ZOLEDRONIC ACID
     Indication: Osteoporosis
     Dosage: 5 MG, ONCE/SINGLE
     Route: 041
     Dates: start: 20220926, end: 20220926

REACTIONS (7)
  - Pancytopenia [Unknown]
  - Chest discomfort [Unknown]
  - Arthralgia [Unknown]
  - Asthenia [Unknown]
  - Pyrexia [Unknown]
  - Myocardial ischaemia [Unknown]
  - Hypokalaemia [Unknown]

NARRATIVE: CASE EVENT DATE: 20220927
